FAERS Safety Report 8998387 (Version 2)
Quarter: 2013Q1

REPORT INFORMATION
  Report Type: Spontaneous
  Country: US (occurrence: US)
  Receive Date: 20130102
  Receipt Date: 20130109
  Transmission Date: 20140127
  Serious: Yes (Other)
  Sender: FDA-Public Use
  Company Number: US-AMGEN-USASP2012083976

PATIENT
  Age: 55 Year
  Sex: Male

DRUGS (3)
  1. ENBREL [Suspect]
     Indication: PSORIASIS
     Dosage: 50 MG, 2 TIMES/WK
     Dates: start: 20110715
  2. ENBREL [Suspect]
     Indication: PSORIATIC ARTHROPATHY
  3. ALCOHOL [Concomitant]
     Dosage: UNK

REACTIONS (9)
  - Blindness [Recovered/Resolved]
  - Head injury [Not Recovered/Not Resolved]
  - Fall [Not Recovered/Not Resolved]
  - Arthralgia [Not Recovered/Not Resolved]
  - Increased upper airway secretion [Recovered/Resolved]
  - Productive cough [Recovered/Resolved]
  - Dizziness [Recovered/Resolved]
  - Arthropathy [Recovered/Resolved]
  - Sinusitis [Recovered/Resolved]
